FAERS Safety Report 8317519-3 (Version None)
Quarter: 2012Q2

REPORT INFORMATION
  Report Type: 
  Country: None (occurrence: None)
  Receive Date: 20120427
  Receipt Date: 20120419
  Transmission Date: 20120825
  Serious: Yes (Hospitalization)
  Sender: FDA-Public Use
  Company Number: NO-UCBSA-055854

PATIENT
  Sex: Female

DRUGS (4)
  1. METHOTREXATE [Concomitant]
     Indication: RHEUMATOID ARTHRITIS
  2. METHOTREXATE [Concomitant]
     Dosage: HIGHER DOSE
  3. CIMZIA [Suspect]
     Indication: RHEUMATOID ARTHRITIS
     Dates: start: 20110901
  4. PREDNISOLONE [Concomitant]
     Indication: RHEUMATOID ARTHRITIS

REACTIONS (3)
  - C-REACTIVE PROTEIN INCREASED [None]
  - MALAISE [None]
  - ARTHRALGIA [None]
